FAERS Safety Report 17737111 (Version 1)
Quarter: 2020Q2

REPORT INFORMATION
  Report Type: Spontaneous
  Country: US (occurrence: US)
  Receive Date: 20200502
  Receipt Date: 20200502
  Transmission Date: 20200714
  Serious: Yes (Death)
  Sender: FDA-Public Use
  Company Number: US-TEVA-2020-US-1229643

PATIENT
  Sex: Male

DRUGS (2)
  1. HEROIN [Suspect]
     Active Substance: DIAMORPHINE
     Route: 065
  2. FENTANYL. [Suspect]
     Active Substance: FENTANYL
     Route: 065

REACTIONS (1)
  - Overdose [Fatal]
